FAERS Safety Report 13571141 (Version 1)
Quarter: 2017Q2

REPORT INFORMATION
  Report Type: Spontaneous
  Country: US (occurrence: US)
  Receive Date: 20170523
  Receipt Date: 20170523
  Transmission Date: 20170830
  Serious: No
  Sender: FDA-Public Use
  Company Number: US-DRREDDYS-USA/USA/16/0080958

PATIENT
  Age: 18 Year
  Sex: Male

DRUGS (2)
  1. ISOTRETINOIN NOT OTHERWISE SPECIFIED [Suspect]
     Active Substance: ISOTRETINOIN
     Indication: ACNE CYSTIC
     Route: 048
  2. AQUAFOR [Concomitant]
     Indication: LIP DISORDER
     Route: 065

REACTIONS (1)
  - Erectile dysfunction [Unknown]
